FAERS Safety Report 16968521 (Version 1)
Quarter: 2019Q4

REPORT INFORMATION
  Report Type: Spontaneous
  Country: US (occurrence: US)
  Receive Date: 20191029
  Receipt Date: 20191029
  Transmission Date: 20200122
  Serious: No
  Sender: FDA-Public Use
  Company Number: US-AMGEN-USASP2019174253

PATIENT
  Age: 61 Year
  Sex: Female

DRUGS (1)
  1. PROLIA [Suspect]
     Active Substance: DENOSUMAB
     Indication: PRODUCT USED FOR UNKNOWN INDICATION
     Dosage: 60 MILLIGRAM, Q6MO
     Route: 065
     Dates: start: 201808, end: 201908

REACTIONS (5)
  - Rash [Unknown]
  - Blister [Unknown]
  - Headache [Unknown]
  - Eye pain [Unknown]
  - Ear pain [Unknown]

NARRATIVE: CASE EVENT DATE: 2018
